FAERS Safety Report 5566857-6 (Version None)
Quarter: 2007Q4

REPORT INFORMATION
  Report Type: 
  Country: None (occurrence: None)
  Receive Date: 20071219
  Receipt Date: 20071211
  Transmission Date: 20080405
  Serious: Yes (Hospitalization)
  Sender: FDA-Public Use
  Company Number: US-ROCHE-532538

PATIENT
  Age: 44 Year
  Sex: Male

DRUGS (2)
  1. PEGASYS [Suspect]
     Indication: HEPATITIS C
     Route: 065
     Dates: start: 20070916, end: 20071114
  2. RIBAVIRIN [Suspect]
     Indication: HEPATITIS C
     Route: 065

REACTIONS (6)
  - BACTERIAL INFECTION [None]
  - DERMATITIS [None]
  - EPISTAXIS [None]
  - HAEMOPTYSIS [None]
  - PLATELET COUNT DECREASED [None]
  - SPEECH DISORDER [None]
